FAERS Safety Report 18202468 (Version 1)
Quarter: 2020Q3

REPORT INFORMATION
  Report Type: Spontaneous
  Country: US (occurrence: US)
  Receive Date: 20200827
  Receipt Date: 20200827
  Transmission Date: 20201103
  Serious: Yes (Other)
  Sender: FDA-Public Use
  Company Number: None

PATIENT
  Age: 74 Year
  Sex: Female
  Weight: 67.13 kg

DRUGS (3)
  1. FAMCICLOVIR. [Suspect]
     Active Substance: FAMCICLOVIR
     Indication: PAIN
     Dosage: ?          QUANTITY:1 DF DOSAGE FORM;?
     Route: 048
     Dates: start: 20200724, end: 20200802
  2. CYMBALTA [Suspect]
     Active Substance: DULOXETINE HYDROCHLORIDE
  3. LYRICA [Suspect]
     Active Substance: PREGABALIN

REACTIONS (19)
  - Drug ineffective [None]
  - Eye pain [None]
  - Ocular hyperaemia [None]
  - Flatulence [None]
  - Nervousness [None]
  - Headache [None]
  - Oropharyngeal pain [None]
  - Muscle spasms [None]
  - Cough [None]
  - Eye irritation [None]
  - Pharyngeal inflammation [None]
  - Eye swelling [None]
  - Pollakiuria [None]
  - Abdominal pain upper [None]
  - Nausea [None]
  - Myalgia [None]
  - Chills [None]
  - Arthralgia [None]
  - Middle insomnia [None]

NARRATIVE: CASE EVENT DATE: 20200724
